FAERS Safety Report 9669939 (Version 2)
Quarter: 2014Q1

REPORT INFORMATION
  Report Type: Spontaneous
  Country: GB (occurrence: GB)
  Receive Date: 20131105
  Receipt Date: 20140107
  Transmission Date: 20141002
  Serious: Yes (Other)
  Sender: FDA-Public Use
  Company Number: GB-ELI_LILLY_AND_COMPANY-GB201310008788

PATIENT
  Age: 35 Year
  Sex: Male
  Weight: 113 kg

DRUGS (4)
  1. ALIMTA [Suspect]
     Indication: NON-SMALL CELL LUNG CANCER
     Dosage: 1100 MG, OTHER
     Route: 042
     Dates: start: 20130909
  2. CISPLATIN [Concomitant]
     Indication: NON-SMALL CELL LUNG CANCER
     Route: 065
  3. VITAMIN B12                        /00056201/ [Concomitant]
     Dosage: 1000 MG, UNKNOWN
     Route: 030
     Dates: start: 20130903
  4. FOLIC ACID WITH VITAMINS-MINERALS [Concomitant]
     Dosage: 18 MG, QD
     Route: 048
     Dates: start: 20130903

REACTIONS (2)
  - Transaminases increased [Recovered/Resolved]
  - Alanine aminotransferase increased [Recovered/Resolved]
